FAERS Safety Report 8243775-6 (Version None)
Quarter: 2012Q1

REPORT INFORMATION
  Report Type: 
  Country: None (occurrence: None)
  Receive Date: 20120329
  Receipt Date: 20110922
  Transmission Date: 20120608
  Serious: No
  Sender: FDA-Public Use
  Company Number: US-MYLANLABS-2011S1019876

PATIENT
  Age: 6 Decade
  Sex: Female

DRUGS (1)
  1. EMSAM [Suspect]
     Indication: DEPRESSION
     Dosage: CHANGES Q.D.
     Route: 062
     Dates: start: 20110201, end: 20110301

REACTIONS (2)
  - MUSCLE SPASMS [None]
  - MYALGIA [None]
